FAERS Safety Report 5034824-7 (Version None)
Quarter: 2006Q2

REPORT INFORMATION
  Report Type: 
  Country: None (occurrence: None)
  Receive Date: 20060519
  Receipt Date: 20060220
  Transmission Date: 20061013
  Serious: No
  Sender: FDA-Public Use
  Company Number: TPA2006A00297

PATIENT
  Age: 81 Year
  Sex: Male
  Weight: 86.1834 kg

DRUGS (8)
  1. ROZEREM [Suspect]
     Indication: INSOMNIA
     Dosage: 8 MG, HS, PER ORAL
     Route: 048
     Dates: start: 20060214
  2. CARDIZEM [Concomitant]
  3. PROPRANOLOL [Concomitant]
  4. COZAAR [Concomitant]
  5. CLONIDINE [Concomitant]
  6. AMILORIDE (AMILORIDE) [Concomitant]
  7. COUMADIN [Concomitant]
  8. HYDROCHLOROTHIAZIDE [Concomitant]

REACTIONS (2)
  - FATIGUE [None]
  - SOMNOLENCE [None]
